FAERS Safety Report 4443317-7 (Version None)
Quarter: 2004Q3

REPORT INFORMATION
  Report Type: 
  Country: None (occurrence: None)
  Receive Date: 20040908
  Receipt Date: 20040830
  Transmission Date: 20050211
  Serious: Yes (Other)
  Sender: FDA-Public Use
  Company Number: 200413279FR

PATIENT
  Sex: 0

DRUGS (2)
  1. ARAVA [Suspect]
     Indication: PSORIATIC ARTHROPATHY
     Route: 048
  2. UNKNOWN DRUG [Concomitant]

REACTIONS (1)
  - RHABDOMYOLYSIS [None]
